FAERS Safety Report 8049793-5 (Version None)
Quarter: 2012Q1

REPORT INFORMATION
  Report Type: 
  Country: None (occurrence: None)
  Receive Date: 20120117
  Receipt Date: 20120112
  Transmission Date: 20120608
  Serious: Yes (Other)
  Sender: FDA-Public Use
  Company Number: FR-ROXANE LABORATORIES, INC.-2012-RO-00478RO

PATIENT
  Age: 1 Year
  Sex: Male

DRUGS (2)
  1. METHOTREXATE [Suspect]
     Indication: BONE SARCOMA
  2. IFOSFAMIDE [Suspect]
     Indication: BONE SARCOMA

REACTIONS (3)
  - ENCEPHALOPATHY [None]
  - NEUROPATHY PERIPHERAL [None]
  - CONVULSION [None]
